FAERS Safety Report 10067083 (Version 1)
Quarter: 2014Q2

REPORT INFORMATION
  Report Type: Spontaneous
  Country: FR (occurrence: FR)
  Receive Date: 20140409
  Receipt Date: 20140409
  Transmission Date: 20141212
  Serious: Yes (Hospitalization)
  Sender: FDA-Public Use
  Company Number: FR-ABBVIE-14K-056-1220581-00

PATIENT
  Age: 13 Year
  Sex: Male

DRUGS (8)
  1. SEVORANE [Suspect]
     Indication: GENERAL ANAESTHESIA
     Route: 055
     Dates: start: 20130426, end: 20130426
  2. FENTANYL JANSSEN [Suspect]
     Indication: GENERAL ANAESTHESIA
     Route: 042
     Dates: start: 20130426, end: 20130426
  3. PROPOFOL LIPURO [Suspect]
     Indication: GENERAL ANAESTHESIA
     Route: 042
     Dates: start: 20130426, end: 20130426
  4. PARACETAMOL [Suspect]
     Indication: ANALGESIC THERAPY
     Route: 042
     Dates: start: 20130426, end: 20130426
  5. PARACETAMOL [Suspect]
  6. NAROPEINE [Suspect]
     Indication: ANALGESIC THERAPY
     Route: 008
     Dates: start: 20130426, end: 20130426
  7. OXYGEN [Concomitant]
     Indication: PRODUCT USED FOR UNKNOWN INDICATION
  8. AZOTES PROTOXYD [Concomitant]
     Indication: PRODUCT USED FOR UNKNOWN INDICATION

REACTIONS (2)
  - Eyelid oedema [Recovered/Resolved]
  - Skin reaction [Recovered/Resolved]
